FAERS Safety Report 5958287-X (Version None)
Quarter: 2008Q4

REPORT INFORMATION
  Report Type: 
  Country: None (occurrence: None)
  Receive Date: 20081117
  Receipt Date: 20081117
  Transmission Date: 20090506
  Serious: No
  Sender: FDA-Public Use
  Company Number: None

PATIENT
  Age: 25 Year
  Sex: Male
  Weight: 80 kg

DRUGS (1)
  1. ROGAINE [Suspect]
     Indication: ANDROGENETIC ALOPECIA
     Dosage: .5 ML 2X DAY TOP
     Route: 061
     Dates: start: 20050901, end: 20060601

REACTIONS (4)
  - INCORRECT DOSE ADMINISTERED [None]
  - OCULAR HYPERAEMIA [None]
  - SKIN DISCOLOURATION [None]
  - SKIN DISORDER [None]
